FAERS Safety Report 6497096-2 (Version None)
Quarter: 2009Q4

REPORT INFORMATION
  Report Type: 
  Country: None (occurrence: None)
  Receive Date: 20091215
  Receipt Date: 20090304
  Transmission Date: 20100525
  Serious: No
  Sender: FDA-Public Use
  Company Number: A0771538A

PATIENT
  Age: 72 Year
  Sex: Male

DRUGS (2)
  1. AVODART [Suspect]
     Route: 048
     Dates: end: 20090201
  2. FLOMAX [Concomitant]

REACTIONS (1)
  - BREAST TENDERNESS [None]
